FAERS Safety Report 18534145 (Version 4)
Quarter: 2022Q1

REPORT INFORMATION
  Report Type: Spontaneous
  Country: JP (occurrence: JP)
  Receive Date: 20201123
  Receipt Date: 20220316
  Transmission Date: 20220424
  Serious: Yes (Life-Threatening, Hospitalization)
  Sender: FDA-Public Use
  Company Number: JP-JNJFOC-A-CH2020-201550

PATIENT
  Age: 82 Year
  Sex: Female
  Weight: 48.3 kg

DRUGS (4)
  1. TRACLEER [Suspect]
     Active Substance: BOSENTAN
     Indication: Skin ulcer
     Dosage: IN THE MORNING AND EVENING
     Route: 048
     Dates: start: 20200120, end: 20200131
  2. TRACLEER [Suspect]
     Active Substance: BOSENTAN
     Indication: Ulcer
  3. CELECOXIB [Concomitant]
     Active Substance: CELECOXIB
     Indication: Systemic scleroderma
     Route: 048
     Dates: start: 20190510, end: 20200201
  4. LANSOPRAZOLE [Concomitant]
     Active Substance: LANSOPRAZOLE
     Indication: Gastrooesophageal reflux disease
     Route: 048
     Dates: start: 20190510

REACTIONS (3)
  - Pulmonary oedema [Recovering/Resolving]
  - Cardiac failure congestive [Recovering/Resolving]
  - Pulmonary vein occlusion [Recovering/Resolving]

NARRATIVE: CASE EVENT DATE: 20200127
